FAERS Safety Report 8563703-3 (Version None)
Quarter: 2012Q3

REPORT INFORMATION
  Report Type: 
  Country: None (occurrence: None)
  Receive Date: 20120803
  Receipt Date: 20120725
  Transmission Date: 20120928
  Serious: No
  Sender: FDA-Public Use
  Company Number: US-BIOGENIDEC-2010BI002350

PATIENT
  Age: 64 Year
  Sex: Female

DRUGS (3)
  1. VICODIN [Concomitant]
     Indication: INJECTION SITE PAIN
  2. AVONEX [Suspect]
     Indication: MULTIPLE SCLEROSIS
     Route: 030
     Dates: start: 20080123
  3. BENADRYL [Concomitant]
     Indication: PREMEDICATION

REACTIONS (15)
  - GENERAL SYMPTOM [None]
  - FATIGUE [None]
  - FALL [None]
  - PYREXIA [None]
  - GAIT DISTURBANCE [None]
  - ROTATOR CUFF SYNDROME [None]
  - CHILLS [None]
  - DRUG ADMINISTERED AT INAPPROPRIATE SITE [None]
  - BACK PAIN [None]
  - MOBILITY DECREASED [None]
  - BALANCE DISORDER [None]
  - INFLUENZA LIKE ILLNESS [None]
  - MALAISE [None]
  - MUSCULAR WEAKNESS [None]
  - ASTHENIA [None]
